FAERS Safety Report 5432527-8 (Version None)
Quarter: 2007Q3

REPORT INFORMATION
  Report Type: 
  Country: None (occurrence: None)
  Receive Date: 20070831
  Receipt Date: 20070828
  Transmission Date: 20080115
  Serious: Yes (Life-Threatening, Hospitalization)
  Sender: FDA-Public Use
  Company Number: PHBS2007FI14212

PATIENT
  Age: 32 Year
  Sex: Male

DRUGS (8)
  1. LEVOZIN [Concomitant]
     Indication: SCHIZOPHRENIA
     Dosage: 100-150 MG/DAY
     Dates: end: 20070727
  2. ANTABUSE [Concomitant]
     Indication: ALCOHOL USE
     Dosage: 50 MG/DAY
     Dates: end: 20070727
  3. DEPRAKINE [Concomitant]
     Indication: SCHIZOPHRENIA
     Dosage: 500 MG/DAY
     Dates: end: 20070727
  4. ABILIFY [Concomitant]
     Indication: SCHIZOPHRENIA
     Dosage: 15 MG/DAY
     Dates: end: 20070727
  5. COLONSOFT [Concomitant]
  6. BETA-LACTAM ANTIBACTERIALS, PENICILLINS [Suspect]
  7. AZTREONAM [Suspect]
  8. LEPONEX [Suspect]
     Indication: SCHIZOPHRENIA
     Dosage: 200 MG/DAY
     Dates: end: 20070727

REACTIONS (16)
  - AGRANULOCYTOSIS [None]
  - C-REACTIVE PROTEIN INCREASED [None]
  - DRUG INTOLERANCE [None]
  - HAEMOGLOBIN DECREASED [None]
  - INFECTION [None]
  - JAW DISORDER [None]
  - LEUKOPENIA [None]
  - NEUTROPENIC SEPSIS [None]
  - NEUTROPHIL COUNT DECREASED [None]
  - NODULE [None]
  - OXYGEN SATURATION DECREASED [None]
  - PHARYNGOLARYNGEAL PAIN [None]
  - PLATELET COUNT INCREASED [None]
  - PYREXIA [None]
  - RASH [None]
  - WHITE BLOOD CELL COUNT INCREASED [None]
